FAERS Safety Report 13178147 (Version 2)
Quarter: 2019Q2

REPORT INFORMATION
  Report Type: Report from Study
  Country: None (occurrence: CL)
  Receive Date: 20170202
  Receipt Date: 20190418
  Transmission Date: 20190711
  Serious: Yes (Other)
  Sender: FDA-Public Use
  Company Number: CL-ABBVIE-17K-034-1851787-00

PATIENT
  Age: 43 Year
  Sex: Male

DRUGS (4)
  1. HUMIRA [Suspect]
     Active Substance: ADALIMUMAB
     Indication: ANKYLOSING SPONDYLITIS
     Dosage: EVERY 3 TO 4 MONTHS
     Route: 058
  2. TAPSIN [Concomitant]
     Indication: PRODUCT USED FOR UNKNOWN INDICATION
  3. HUMIRA [Suspect]
     Active Substance: ADALIMUMAB
     Indication: ANKYLOSING SPONDYLITIS
     Route: 058
     Dates: start: 20130316, end: 201507
  4. ACETAMINOPHEN. [Concomitant]
     Active Substance: ACETAMINOPHEN
     Indication: PRODUCT USED FOR UNKNOWN INDICATION

REACTIONS (3)
  - Device fastener issue [Not Recovered/Not Resolved]
  - Neck pain [Not Recovered/Not Resolved]
  - Intervertebral disc disorder [Not Recovered/Not Resolved]

NARRATIVE: CASE EVENT DATE: 2016
